FAERS Safety Report 4687084-0 (Version None)
Quarter: 2005Q2

REPORT INFORMATION
  Report Type: 
  Country: None (occurrence: None)
  Receive Date: 20050607
  Receipt Date: 20050525
  Transmission Date: 20051028
  Serious: Yes (Hospitalization, Other)
  Sender: FDA-Public Use
  Company Number: USA040155741

PATIENT
  Age: 76 Year
  Sex: Female
  Weight: 73 kg

DRUGS (5)
  1. FORTEO [Suspect]
     Indication: OSTEOPOROSIS
     Dates: start: 20030501
  2. EVISTA [Suspect]
     Indication: OSTEOPOROSIS
     Dates: start: 19970101
  3. SYNTESTAN (CLOPREDNOL) [Concomitant]
  4. VIOXX [Concomitant]
  5. METHADONE HCL [Concomitant]

REACTIONS (25)
  - ABDOMINAL PAIN UPPER [None]
  - ANAEMIA [None]
  - ANGIOGRAM ABNORMAL [None]
  - ANGIOPATHY [None]
  - ASTHENIA [None]
  - BACK PAIN [None]
  - CATARACT [None]
  - CHROMATOPSIA [None]
  - EYE DISORDER [None]
  - HYPERTENSION [None]
  - IDIOPATHIC PULMONARY FIBROSIS [None]
  - MACULAR OEDEMA [None]
  - MACULOPATHY [None]
  - MUSCULOSKELETAL PAIN [None]
  - OCULAR HYPERAEMIA [None]
  - PAIN [None]
  - RETINAL VEIN OCCLUSION [None]
  - RETINOPATHY HYPERTENSIVE [None]
  - RHEUMATOID ARTHRITIS [None]
  - SARCOIDOSIS [None]
  - SKIN NODULE [None]
  - SKIN WARM [None]
  - THROMBOSIS [None]
  - ULCER [None]
  - VITREOUS FLOATERS [None]
